FAERS Safety Report 9353784 (Version 1)
Quarter: 2013Q2

REPORT INFORMATION
  Report Type: Spontaneous
  Country: US (occurrence: US)
  Receive Date: 20130618
  Receipt Date: 20130618
  Transmission Date: 20140414
  Serious: No
  Sender: FDA-Public Use
  Company Number: US-009507513-1306USA006627

PATIENT
  Age: 54 Year
  Sex: Male

DRUGS (3)
  1. PEGINTRON [Suspect]
     Indication: HEPATITIS C
     Dosage: 120 MICROGRAM, QW
     Route: 058
     Dates: start: 20130607, end: 20130610
  2. TELAPREVIR [Concomitant]
     Indication: HEPATITIS C
  3. RIBASPHERE [Concomitant]
     Indication: HEPATITIS C

REACTIONS (1)
  - Vomiting [Unknown]
